FAERS Safety Report 25913939 (Version 1)
Quarter: 2025Q4

REPORT INFORMATION
  Report Type: Spontaneous
  Country: EU (occurrence: EU)
  Receive Date: 20251013
  Receipt Date: 20251013
  Transmission Date: 20260118
  Serious: Yes (Other)
  Sender: TEVA
  Company Number: None

PATIENT
  Age: 21 Year
  Sex: Male

DRUGS (3)
  1. PREGABALIN [Suspect]
     Active Substance: PREGABALIN
     Indication: Product used for unknown indication
     Route: 065
  2. NITRIC OXIDE [Suspect]
     Active Substance: NITRIC OXIDE
     Indication: Product used for unknown indication
     Dosage: (CYLINDER)
     Route: 065
  3. CANNABIS SATIVA SUBSP. INDICA TOP [Suspect]
     Active Substance: CANNABIS SATIVA SUBSP. INDICA TOP
     Indication: Product used for unknown indication
     Route: 065

REACTIONS (5)
  - Substance use disorder [Unknown]
  - Mydriasis [Recovered/Resolved]
  - Generalised tonic-clonic seizure [Recovered/Resolved]
  - Drug use disorder [Unknown]
  - Tachycardia [Recovered/Resolved]

NARRATIVE: CASE EVENT DATE: 20250614
